FAERS Safety Report 26203969 (Version 1)
Quarter: 2025Q4

REPORT INFORMATION
  Report Type: Report from Study
  Country: US (occurrence: US)
  Receive Date: 20251226
  Receipt Date: 20251226
  Transmission Date: 20260118
  Serious: No
  Sender: DR REDDYS
  Company Number: US-DRL-USA-USA/2025/12/019243

PATIENT
  Sex: Female
  Weight: 75.75 kg

DRUGS (1)
  1. JAVYGTOR [Suspect]
     Active Substance: SAPROPTERIN DIHYDROCHLORIDE
     Indication: Phenylketonuria
     Dosage: TAKE THREE POWDER PACKETS (1500 MG) BY MOUTH,??DISSOLVE THREE POWDER PACKETS IN 4 TO 8 OUNCES OF WAT
     Route: 048

REACTIONS (1)
  - Maternal exposure during pregnancy [Unknown]
